FAERS Safety Report 18581863 (Version 2)
Quarter: 2022Q2

REPORT INFORMATION
  Report Type: Spontaneous
  Country: US (occurrence: US)
  Receive Date: 20201204
  Receipt Date: 20220406
  Transmission Date: 20220720
  Serious: No
  Sender: FDA-Public Use
  Company Number: US-PFIZER INC-2020478853

PATIENT
  Age: 84 Year
  Sex: Male
  Weight: 71.67 kg

DRUGS (2)
  1. VYNDAMAX [Suspect]
     Active Substance: TAFAMIDIS
     Indication: Dyspnoea
     Dosage: 61 MG, 1X/DAY (AT NIGHT)
     Route: 048
  2. VYNDAMAX [Suspect]
     Active Substance: TAFAMIDIS
     Indication: Mobility decreased

REACTIONS (3)
  - Therapeutic product effect delayed [Unknown]
  - Off label use [Unknown]
  - Drug effective for unapproved indication [Unknown]
